FAERS Safety Report 10184665 (Version 1)
Quarter: 2014Q2

REPORT INFORMATION
  Report Type: Spontaneous
  Country: US (occurrence: None)
  Receive Date: 20140519
  Receipt Date: 20140519
  Transmission Date: 20141212
  Serious: Yes (Other)
  Sender: FDA-Public Use
  Company Number: US-015623

PATIENT
  Sex: Male

DRUGS (1)
  1. PICO-SALAX (NOT SPECIFIED) [Suspect]
     Indication: BOWEL PREPARATION
     Dosage: (SPLIT DOSE PRESCRIBED ORAL)
     Route: 048

REACTIONS (2)
  - Syncope [None]
  - Hypotension [None]
